FAERS Safety Report 9159805 (Version 1)
Quarter: 2013Q1

REPORT INFORMATION
  Report Type: Spontaneous
  Country: US (occurrence: None)
  Receive Date: 20130220
  Receipt Date: 20130220
  Transmission Date: 20140127
  Serious: Yes (Hospitalization)
  Sender: FDA-Public Use
  Company Number: TPA2012A03841

PATIENT
  Age: 77 Year
  Sex: Male
  Weight: 118.84 kg

DRUGS (2)
  1. ACTOS [Suspect]
     Indication: DIABETES MELLITUS INADEQUATE CONTROL
     Route: 048
     Dates: start: 200502, end: 20091012
  2. GLIMEPIRIDE [Suspect]

REACTIONS (3)
  - Cardiac failure congestive [None]
  - Nausea [None]
  - Decreased appetite [None]
